FAERS Safety Report 9631814 (Version 1)
Quarter: 2013Q4

REPORT INFORMATION
  Report Type: Spontaneous
  Country: ES (occurrence: None)
  Receive Date: 20131016
  Receipt Date: 20131016
  Transmission Date: 20140711
  Serious: Yes (Other)
  Sender: FDA-Public Use
  Company Number: 2013P1019985

PATIENT
  Age: 83 Year
  Sex: Male

DRUGS (1)
  1. MITOMYCIN [Suspect]
     Indication: BLADDER TRANSITIONAL CELL CARCINOMA

REACTIONS (7)
  - Urethral dilatation [None]
  - Toxic skin eruption [None]
  - Drug hypersensitivity [None]
  - Superinfection [None]
  - Enterococcus test positive [None]
  - Genital ulceration [None]
  - Penile necrosis [None]
